FAERS Safety Report 21955451 (Version 2)
Quarter: 2023Q2

REPORT INFORMATION
  Report Type: Report from Study
  Country: US (occurrence: US)
  Receive Date: 20230206
  Receipt Date: 20230413
  Transmission Date: 20230722
  Serious: Yes (Other)
  Sender: FDA-Public Use
  Company Number: US-ABBVIE-4295509

PATIENT
  Age: 69 Year
  Sex: Male
  Weight: 73.028 kg

DRUGS (18)
  1. IMBRUVICA [Suspect]
     Active Substance: IBRUTINIB
     Indication: Chronic lymphocytic leukaemia
     Dosage: FORM STRENGTH: 420 MILLIGRAM?FREQUENCY TEXT: DAILY
     Route: 048
     Dates: start: 20181013
  2. ACETAMINOPHEN [Concomitant]
     Active Substance: ACETAMINOPHEN
     Indication: Product used for unknown indication
     Dosage: AS NEEDED
     Route: 048
  3. PSEUDOEPHEDRINE HYDROCHLORIDE [Concomitant]
     Active Substance: PSEUDOEPHEDRINE HYDROCHLORIDE
     Indication: Product used for unknown indication
     Dosage: TAKE 30 MG BY MOUTH AS DIRECTED AS NEEDED.
     Route: 048
  4. COLD- EEZE [Concomitant]
     Indication: Product used for unknown indication
     Dosage: AS NEEDED ZINC COLD THERAPY CHEWABLE TABLETS
     Route: 048
  5. VITAMINS [Concomitant]
     Active Substance: VITAMINS
     Indication: Product used for unknown indication
     Dosage: FREQUENCY TEXT: ONCE A DAY
     Route: 048
  6. BRIMONIDINE [Concomitant]
     Active Substance: BRIMONIDINE TARTRATE
     Indication: Product used for unknown indication
     Dosage: APPLY 1 DROP TO EYE IN MORNING AND 1 DROP AT NOON AND 1 DROP BEFORE BEDTIME.? 0.2 OPTHALMIC SOLUTION
  7. COENZYME Q10 [Concomitant]
     Active Substance: DIETARY SUPPLEMENT\UBIDECARENONE
     Indication: Product used for unknown indication
     Dosage: FORM STRENGTH UNITS:100 MILLIGRAM
     Route: 048
  8. ASCORBIC ACID [Concomitant]
     Active Substance: ASCORBIC ACID
     Indication: Product used for unknown indication
     Dosage: TAKE 500MG BY MOUTH ONCE A DAY.
     Route: 048
  9. DIPHENHYDRAMINE [Concomitant]
     Active Substance: DIPHENHYDRAMINE
     Indication: Product used for unknown indication
     Dosage: FORM STRENGTH:25 MILLIGRAM?TAKE 25 MG BY MOUTH IF NEEDED.
     Route: 048
  10. CYANOCOBALAMIN\PYRIDOXINE HYDROCHLORIDE\RIBOFLAVIN\SODIUM PANTOTHENATE [Concomitant]
     Active Substance: CYANOCOBALAMIN\PYRIDOXINE HYDROCHLORIDE\RIBOFLAVIN\SODIUM PANTOTHENATE\THIAMINE HYDROCHLORIDE\VITAMI
     Indication: Product used for unknown indication
     Dosage: TAKE 1 TABLET BY MOUTH ONCE A DAY THREE TIMES PER WEEK.
     Route: 048
  11. THE ORIGINAL NATURAL HERB COUGH DROPS [Concomitant]
     Active Substance: MENTHOL
     Indication: Product used for unknown indication
     Dosage: SUGAR FREE RICOLA COUGH DROPS.
  12. dorzolzmide -timolo 2% opthalmic drop [Concomitant]
     Indication: Product used for unknown indication
     Dosage: FREQUENCY TEXT: MORNING AND BEDTIME 1 DROP
  13. FAMOTIDINE [Concomitant]
     Active Substance: FAMOTIDINE
     Indication: Product used for unknown indication
     Dosage: FREQUENCY TEXT: DAILY?TAKE 1 TAB DAILY.
     Route: 048
  14. ezetimibe -simvaststine [Concomitant]
     Indication: Product used for unknown indication
     Dosage: 10-20 MG?FREQUENCY TEXT: BEDTIME
  15. Cholecalciferol (vitD3) [Concomitant]
     Indication: Product used for unknown indication
     Dosage: 50MCG ?TAKE 2000 UNITS BY MOUTH ONCE A DAY
     Route: 048
  16. METAMUCIL [Concomitant]
     Active Substance: PLANTAGO SEED
     Indication: Product used for unknown indication
     Route: 048
  17. CAFFEINE [Concomitant]
     Active Substance: CAFFEINE
     Indication: Product used for unknown indication
     Dosage: TAKE BY MOUTH AS NEEDED.
     Route: 048
  18. CRANBERRY [Concomitant]
     Active Substance: CRANBERRY
     Indication: Product used for unknown indication
     Dosage: FORM STRENGTH:500 MILLIGRAM?TAKE BY MOUTH PER ORAL AS NEEDED
     Route: 048

REACTIONS (3)
  - Retinal detachment [Recovering/Resolving]
  - Vitreous detachment [Not Recovered/Not Resolved]
  - Retinal tear [Recovering/Resolving]

NARRATIVE: CASE EVENT DATE: 20220412
